FAERS Safety Report 8547519-X (Version None)
Quarter: 2012Q3

REPORT INFORMATION
  Report Type: 
  Country: None (occurrence: None)
  Receive Date: 20120727
  Receipt Date: 20120327
  Transmission Date: 20120928
  Serious: No
  Sender: FDA-Public Use
  Company Number: US-ASTRAZENECA-2012SE20891

PATIENT
  Age: 56 Year
  Sex: Female

DRUGS (1)
  1. SEROQUEL [Suspect]
     Route: 048

REACTIONS (6)
  - ANGER [None]
  - ABNORMAL BEHAVIOUR [None]
  - INSOMNIA [None]
  - INTENTIONAL DRUG MISUSE [None]
  - ASOCIAL BEHAVIOUR [None]
  - TENSION [None]
